FAERS Safety Report 10175501 (Version 3)
Quarter: 2014Q2

REPORT INFORMATION
  Report Type: Report from Study
  Country: GB (occurrence: GB)
  Receive Date: 20140516
  Receipt Date: 20140523
  Transmission Date: 20141212
  Serious: Yes (Other)
  Sender: FDA-Public Use
  Company Number: GB-ROCHE-1379218

PATIENT
  Age: 86 Year
  Sex: Male

DRUGS (6)
  1. RANIBIZUMAB [Suspect]
     Indication: PRODUCT USED FOR UNKNOWN INDICATION
     Route: 050
     Dates: start: 20101221, end: 20130718
  2. RANIBIZUMAB [Suspect]
     Route: 050
     Dates: start: 20130718, end: 20131230
  3. WARFARIN [Concomitant]
     Indication: PROPHYLAXIS
     Route: 065
     Dates: start: 20080201
  4. FUROSEMIDE [Concomitant]
     Indication: LEFT VENTRICULAR HYPERTROPHY
     Route: 065
     Dates: start: 20080201
  5. ALLOPURINOL [Concomitant]
     Indication: GOUT
     Route: 065
     Dates: start: 20020101
  6. MAXEPA [Concomitant]
     Indication: PRODUCT USED FOR UNKNOWN INDICATION
     Route: 065
     Dates: start: 19920101

REACTIONS (1)
  - Cerebral haemorrhage [Recovered/Resolved]
